FAERS Safety Report 4907076-3 (Version None)
Quarter: 2006Q1

REPORT INFORMATION
  Report Type: 
  Country: None (occurrence: None)
  Receive Date: 20060206
  Receipt Date: 20060120
  Transmission Date: 20060701
  Serious: Yes (Life-Threatening, Other)
  Sender: FDA-Public Use
  Company Number: TRP_0656_2005

PATIENT
  Age: 35 Year
  Sex: Male
  Weight: 77.1115 kg

DRUGS (6)
  1. REBETOL [Suspect]
     Indication: HEPATITIS C
     Dosage: 600 MG BID PO
     Route: 048
     Dates: start: 20051028, end: 20051129
  2. PEG-INTRON/PEGINTERFERON ALFA-2B/SCHERING-PLOUGH / REDIPEN [Suspect]
     Indication: HEPATITIS C
     Dosage: 150 MCG QWK SC
     Route: 058
     Dates: start: 20051028, end: 20051129
  3. CENTRUM [Concomitant]
  4. EXTRA STRENGTH TYLENOL [Concomitant]
  5. XANAX [Concomitant]
  6. ZOLOFT [Concomitant]

REACTIONS (7)
  - AGGRESSION [None]
  - ALCOHOL USE [None]
  - DRUG ABUSER [None]
  - HALLUCINATION, VISUAL [None]
  - HOMICIDAL IDEATION [None]
  - SLEEP TALKING [None]
  - SUICIDAL IDEATION [None]
